FAERS Safety Report 14568864 (Version 6)
Quarter: 2019Q3

REPORT INFORMATION
  Report Type: Report from Study
  Country: US (occurrence: US)
  Receive Date: 20180223
  Receipt Date: 20190726
  Transmission Date: 20191004
  Serious: Yes (Life-Threatening)
  Sender: FDA-Public Use
  Company Number: PHEH2018US007457

PATIENT
  Age: 48 Year
  Sex: Male

DRUGS (2)
  1. COSENTYX [Suspect]
     Active Substance: SECUKINUMAB
     Indication: PSORIASIS
     Dosage: 300 MG, QMO
     Route: 030
     Dates: start: 20171025
  2. COSENTYX [Suspect]
     Active Substance: SECUKINUMAB
     Dosage: UNK
     Route: 058
     Dates: start: 20180213

REACTIONS (13)
  - Temperature intolerance [Unknown]
  - Coronary artery occlusion [Recovering/Resolving]
  - Influenza [Unknown]
  - Psoriasis [Unknown]
  - Pruritus generalised [Unknown]
  - Therapeutic response unexpected [Unknown]
  - Energy increased [Unknown]
  - Pain [Unknown]
  - Myocardial infarction [Recovering/Resolving]
  - Movement disorder [Unknown]
  - Skin lesion [Unknown]
  - Insomnia [Unknown]
  - Product use issue [Unknown]

NARRATIVE: CASE EVENT DATE: 20171026
